FAERS Safety Report 4538469-4 (Version None)
Quarter: 2004Q4

REPORT INFORMATION
  Report Type: 
  Country: None (occurrence: None)
  Receive Date: 20041223
  Receipt Date: 20041223
  Transmission Date: 20050328
  Serious: Yes (Life-Threatening, Hospitalization)
  Sender: FDA-Public Use
  Company Number: None

PATIENT
  Age: 58 Year
  Sex: Male
  Weight: 231.2 kg

DRUGS (1)
  1. DOXAZOSIN [Suspect]
     Dosage: 1 MG PO QHS

REACTIONS (6)
  - ABDOMINAL PAIN [None]
  - CHEST PAIN [None]
  - HYPOTENSION [None]
  - MENTAL STATUS CHANGES [None]
  - SYNCOPE [None]
  - URINARY RETENTION [None]
